FAERS Safety Report 6156438-8 (Version None)
Quarter: 2009Q2

REPORT INFORMATION
  Report Type: 
  Country: None (occurrence: None)
  Receive Date: 20090413
  Receipt Date: 20090327
  Transmission Date: 20091009
  Serious: Yes (Other)
  Sender: FDA-Public Use
  Company Number: 8044377

PATIENT
  Age: 3 Year
  Sex: Female
  Weight: 15.91 kg

DRUGS (1)
  1. KEPPRA [Suspect]
     Indication: CONVULSION
     Dosage: 3 ML 2/D PO
     Route: 048
     Dates: start: 20090101

REACTIONS (9)
  - ABNORMAL BEHAVIOUR [None]
  - AGGRESSION [None]
  - ANOREXIA [None]
  - CONDITION AGGRAVATED [None]
  - CONVULSION [None]
  - DIARRHOEA [None]
  - ENURESIS [None]
  - HYPERACUSIS [None]
  - SCREAMING [None]
